FAERS Safety Report 18102491 (Version 2)
Quarter: 2020Q3

REPORT INFORMATION
  Report Type: Spontaneous
  Country: US (occurrence: US)
  Receive Date: 20200803
  Receipt Date: 20200904
  Transmission Date: 20201103
  Serious: No
  Sender: FDA-Public Use
  Company Number: US-KYOWAKIRIN-2020BKK012376

PATIENT

DRUGS (1)
  1. CRYSVITA [Suspect]
     Active Substance: BUROSUMAB-TWZA
     Indication: HEREDITARY HYPOPHOSPHATAEMIC RICKETS
     Dosage: UNK UNK, 1X/2 WEEKS
     Route: 058
     Dates: start: 20200513

REACTIONS (2)
  - Injection site injury [Unknown]
  - Product administration error [Unknown]

NARRATIVE: CASE EVENT DATE: 202007
